FAERS Safety Report 23145750 (Version 6)
Quarter: 2024Q1

REPORT INFORMATION
  Report Type: Report from Study
  Country: CA (occurrence: CA)
  Receive Date: 20231103
  Receipt Date: 20240201
  Transmission Date: 20240409
  Serious: Yes (Other)
  Sender: FDA-Public Use
  Company Number: CA-HLS-202302450

PATIENT
  Age: 62 Year
  Sex: Male

DRUGS (2)
  1. CLOZARIL [Suspect]
     Active Substance: CLOZAPINE
     Indication: Product used for unknown indication
     Route: 048
     Dates: start: 20061122, end: 20231002
  2. CLOZARIL [Suspect]
     Active Substance: CLOZAPINE
     Indication: Product used for unknown indication
     Dosage: RESTARTED ON 17 JAN 2024. RECEIVED 200 MG ON 17-JAN-2024 AND HELD THE 200MG DOSAGE ON 18-JAN-2024 AS
     Route: 048

REACTIONS (17)
  - Blood pressure decreased [Recovering/Resolving]
  - Blood pressure increased [Unknown]
  - Blood creatine phosphokinase decreased [Unknown]
  - C-reactive protein increased [Unknown]
  - Blood creatine phosphokinase decreased [Unknown]
  - Blood creatinine increased [Recovered/Resolved]
  - Eosinophil count increased [Recovered/Resolved]
  - High density lipoprotein decreased [Unknown]
  - Heart rate increased [Unknown]
  - Haematocrit decreased [Unknown]
  - Haemoglobin decreased [Unknown]
  - Lymphocyte count decreased [Unknown]
  - Orthostatic hypotension [Unknown]
  - Left atrial enlargement [Unknown]
  - Progressive supranuclear palsy [Unknown]
  - Red blood cell count decreased [Unknown]
  - Blood triglycerides increased [Unknown]

NARRATIVE: CASE EVENT DATE: 20231114
